FAERS Safety Report 9047197 (Version 1)
Quarter: 2013Q1

REPORT INFORMATION
  Report Type: Report from Study
  Country: US (occurrence: US)
  Receive Date: 20130130
  Receipt Date: 20130130
  Transmission Date: 20140127
  Serious: No
  Sender: FDA-Public Use
  Company Number: US-ABBOTT-12P-163-0977582-00

PATIENT
  Age: 46 Year
  Sex: Male

DRUGS (5)
  1. HUMIRA [Suspect]
     Indication: CROHN^S DISEASE
     Dates: start: 20120810, end: 20120810
  2. HUMIRA [Suspect]
     Dates: start: 20120824
  3. PREDNISONE [Concomitant]
     Indication: PRODUCT USED FOR UNKNOWN INDICATION
     Route: 048
  4. VICODIN [Concomitant]
     Indication: PRODUCT USED FOR UNKNOWN INDICATION
     Dosage: 5/500
     Route: 048
  5. OMEPRAZOLE [Concomitant]
     Indication: ABDOMINAL DISCOMFORT

REACTIONS (1)
  - Injection site pain [Not Recovered/Not Resolved]
